FAERS Safety Report 12891977 (Version 2)
Quarter: 2016Q4

REPORT INFORMATION
  Report Type: Spontaneous
  Country: GB (occurrence: GB)
  Receive Date: 20161028
  Receipt Date: 20161113
  Transmission Date: 20170207
  Serious: Yes (Other)
  Sender: FDA-Public Use
  Company Number: GB-TEVA-706076ACC

PATIENT
  Sex: Female
  Weight: 43 kg

DRUGS (1)
  1. CITALOPRAM [Suspect]
     Active Substance: CITALOPRAM HYDROBROMIDE

REACTIONS (4)
  - Dissociation [Unknown]
  - Retching [Unknown]
  - Loss of consciousness [Unknown]
  - Eye movement disorder [Unknown]
